FAERS Safety Report 17496122 (Version 1)
Quarter: 2020Q1

REPORT INFORMATION
  Report Type: Spontaneous
  Country: CH (occurrence: CH)
  Receive Date: 20200303
  Receipt Date: 20200303
  Transmission Date: 20200409
  Serious: Yes (Congenital Anomaly)
  Sender: FDA-Public Use
  Company Number: CH-ALLERGAN-2009601US

PATIENT

DRUGS (3)
  1. HYDROCHLOROTHIAZIDE UNK [Suspect]
     Active Substance: HYDROCHLOROTHIAZIDE
     Indication: EXPOSURE DURING PREGNANCY
     Route: 064
  2. IRBESARTAN. [Suspect]
     Active Substance: IRBESARTAN
     Indication: EXPOSURE DURING PREGNANCY
     Route: 064
  3. ORLISTAT. [Suspect]
     Active Substance: ORLISTAT
     Indication: EXPOSURE DURING PREGNANCY
     Route: 064

REACTIONS (2)
  - Talipes [Unknown]
  - Pregnancy [Unknown]
